FAERS Safety Report 5773528-X (Version None)
Quarter: 2008Q2

REPORT INFORMATION
  Report Type: 
  Country: None (occurrence: None)
  Receive Date: 20080616
  Receipt Date: 20080605
  Transmission Date: 20081010
  Serious: Yes (Other)
  Sender: FDA-Public Use
  Company Number: US-ROCHE-563134

PATIENT
  Age: 18 Year
  Sex: Female

DRUGS (5)
  1. ACCUTANE [Suspect]
     Indication: ACNE
     Route: 065
     Dates: end: 20080101
  2. ABILIFY [Concomitant]
     Route: 065
  3. ABILIFY [Concomitant]
     Dosage: DOSAGE INCREASED TEMPORARILY
     Route: 065
  4. MELATONIN [Concomitant]
     Dosage: OTC MELATONIN
     Route: 065
  5. LEXAPRO [Concomitant]
     Route: 065

REACTIONS (3)
  - HALLUCINATION [None]
  - PARANOIA [None]
  - PSYCHOTIC DISORDER [None]
